FAERS Safety Report 13337580 (Version 2)
Quarter: 2018Q2

REPORT INFORMATION
  Report Type: Report from Study
  Country: BR (occurrence: BR)
  Receive Date: 20170315
  Receipt Date: 20180420
  Transmission Date: 20180711
  Serious: Yes (Death)
  Sender: FDA-Public Use
  Company Number: PHHY2017BR039354

PATIENT
  Age: 92 Year
  Sex: Female
  Weight: 50 kg

DRUGS (1)
  1. EXELON PATCH [Suspect]
     Active Substance: RIVASTIGMINE
     Indication: DEMENTIA ALZHEIMER^S TYPE
     Dosage: 13.3 MG, QD, PATCH (15 CM2), 2 YEARS AGO
     Route: 062
     Dates: end: 201702

REACTIONS (3)
  - Pneumonia [Fatal]
  - Metastases to lung [Fatal]
  - Breast cancer [Fatal]

NARRATIVE: CASE EVENT DATE: 201612
